FAERS Safety Report 8767402 (Version 1)
Quarter: 2012Q4

REPORT INFORMATION
  Report Type: 
  Country: US (occurrence: US)
  Receive Date: 20120904
  Receipt Date: 20120904
  Transmission Date: 20130627
  Serious: No
  Sender: FDA-Public Use
  Company Number: US-TEVA-356665USA

PATIENT
  Sex: Male
  Weight: 79.45 kg

DRUGS (10)
  1. AZILECT [Suspect]
     Dosage: 1 Milligram Daily;
     Route: 048
     Dates: start: 201206
  2. AMANTIDINE [Concomitant]
     Indication: PARKINSON^S DISEASE
     Dosage: 50 Milligram Daily; 200 mg
     Route: 048
     Dates: start: 20120822
  3. VESICARE [Concomitant]
     Indication: URINARY TRACT DISORDER
     Dosage: 10 Milligram Daily;
     Route: 048
  4. RAPAFLO [Concomitant]
     Dosage: 8 Milligram Daily;
     Route: 048
  5. ASPIRIN [Concomitant]
     Indication: ROUTINE HEALTH MAINTENANCE
     Dosage: 81 Milligram Daily;
     Route: 048
  6. TRAZODONE [Concomitant]
     Indication: INSOMNIA
     Dosage: 100 Milligram Daily; 200 mg
     Route: 048
  7. BUPROPION [Concomitant]
     Indication: DEPRESSION
     Dosage: 300 Milligram Daily;
     Route: 048
  8. LASIX [Concomitant]
     Indication: HYPERTENSION
     Dosage: 20 Milligram Daily;
     Route: 048
  9. SINEMET CR [Concomitant]
     Indication: PARKINSON^S DISEASE
     Dosage: 25 mg/100 mg 8 x daily
     Route: 048
  10. ATORVASTATIN [Concomitant]
     Indication: HYPERLIPIDAEMIA
     Dosage: 20 Milligram Daily;
     Route: 048

REACTIONS (1)
  - Dyskinesia [Not Recovered/Not Resolved]
